FAERS Safety Report 16230603 (Version 5)
Quarter: 2019Q2

REPORT INFORMATION
  Report Type: Report from Study
  Country: US (occurrence: US)
  Receive Date: 20190423
  Receipt Date: 20190621
  Transmission Date: 20190711
  Serious: No
  Sender: FDA-Public Use
  Company Number: PHEH2019US017038

PATIENT
  Sex: Male

DRUGS (1)
  1. ENTRESTO [Suspect]
     Active Substance: SACUBITRIL\VALSARTAN
     Indication: PRODUCT USED FOR UNKNOWN INDICATION
     Dosage: UNK
     Route: 048

REACTIONS (8)
  - Lethargy [Unknown]
  - Blood pressure fluctuation [Unknown]
  - Dizziness [Unknown]
  - Night sweats [Unknown]
  - Hypertension [Unknown]
  - Asthenia [Unknown]
  - Drug ineffective [Unknown]
  - Oxygen saturation abnormal [Unknown]
